FAERS Safety Report 11782564 (Version 1)
Quarter: 2015Q4

REPORT INFORMATION
  Report Type: Spontaneous
  Country: US (occurrence: US)
  Receive Date: 20151127
  Receipt Date: 20151127
  Transmission Date: 20160305
  Serious: Yes (Hospitalization)
  Sender: FDA-Public Use
  Company Number: US-ROCHE-1666151

PATIENT
  Sex: Female
  Weight: 70 kg

DRUGS (18)
  1. CELLCEPT [Suspect]
     Active Substance: MYCOPHENOLATE MOFETIL\MYCOPHENOLATE MOFETIL HYDROCHLORIDE
     Indication: DIASTOLIC DYSFUNCTION
     Route: 065
  2. REVATIO [Suspect]
     Active Substance: SILDENAFIL CITRATE
     Indication: GASTROOESOPHAGEAL REFLUX DISEASE
  3. CELLCEPT [Suspect]
     Active Substance: MYCOPHENOLATE MOFETIL\MYCOPHENOLATE MOFETIL HYDROCHLORIDE
     Indication: MIXED CONNECTIVE TISSUE DISEASE
  4. REVATIO [Suspect]
     Active Substance: SILDENAFIL CITRATE
     Indication: DIASTOLIC DYSFUNCTION
     Route: 065
  5. CELLCEPT [Suspect]
     Active Substance: MYCOPHENOLATE MOFETIL\MYCOPHENOLATE MOFETIL HYDROCHLORIDE
     Indication: HYPOTHYROIDISM
  6. RITUXIMAB [Suspect]
     Active Substance: RITUXIMAB
     Indication: GASTROOESOPHAGEAL REFLUX DISEASE
  7. RITUXIMAB [Suspect]
     Active Substance: RITUXIMAB
     Indication: PULMONARY HYPERTENSION
  8. RITUXIMAB [Suspect]
     Active Substance: RITUXIMAB
     Indication: PERICARDIAL EFFUSION
  9. CELLCEPT [Suspect]
     Active Substance: MYCOPHENOLATE MOFETIL\MYCOPHENOLATE MOFETIL HYDROCHLORIDE
     Indication: GASTROOESOPHAGEAL REFLUX DISEASE
  10. REVATIO [Suspect]
     Active Substance: SILDENAFIL CITRATE
     Indication: HYPOTHYROIDISM
  11. RITUXIMAB [Suspect]
     Active Substance: RITUXIMAB
     Indication: DIASTOLIC DYSFUNCTION
     Route: 042
  12. RITUXIMAB [Suspect]
     Active Substance: RITUXIMAB
     Indication: HYPOTHYROIDISM
  13. RITUXIMAB [Suspect]
     Active Substance: RITUXIMAB
     Indication: MIXED CONNECTIVE TISSUE DISEASE
  14. REVATIO [Suspect]
     Active Substance: SILDENAFIL CITRATE
     Indication: PERICARDIAL EFFUSION
  15. REVATIO [Suspect]
     Active Substance: SILDENAFIL CITRATE
     Indication: MIXED CONNECTIVE TISSUE DISEASE
  16. REVATIO [Suspect]
     Active Substance: SILDENAFIL CITRATE
     Indication: PULMONARY HYPERTENSION
  17. CELLCEPT [Suspect]
     Active Substance: MYCOPHENOLATE MOFETIL\MYCOPHENOLATE MOFETIL HYDROCHLORIDE
     Indication: PERICARDIAL EFFUSION
  18. CELLCEPT [Suspect]
     Active Substance: MYCOPHENOLATE MOFETIL\MYCOPHENOLATE MOFETIL HYDROCHLORIDE
     Indication: PULMONARY HYPERTENSION

REACTIONS (1)
  - Pulmonary hypertension [Unknown]
